FAERS Safety Report 15919052 (Version 1)
Quarter: 2019Q1

REPORT INFORMATION
  Report Type: Spontaneous
  Country: GB (occurrence: GB)
  Receive Date: 20190205
  Receipt Date: 20190205
  Transmission Date: 20190417
  Serious: Yes (Hospitalization, Other)
  Sender: FDA-Public Use
  Company Number: GB-BAUSCH-BL-2019-003129

PATIENT
  Sex: Male

DRUGS (11)
  1. D-PENICILLAMINE [Suspect]
     Active Substance: PENICILLAMINE
     Route: 065
     Dates: start: 1980, end: 1980
  2. D-PENICILLAMINE [Suspect]
     Active Substance: PENICILLAMINE
     Indication: RHEUMATOID ARTHRITIS
     Dosage: GRADUALLY INCREASED TO 900 MG PER DAY
     Route: 065
     Dates: start: 197401, end: 197711
  3. PREDNISOLONE. [Concomitant]
     Active Substance: PREDNISOLONE
  4. PREDNISOLONE. [Concomitant]
     Active Substance: PREDNISOLONE
     Dates: end: 198007
  5. PREDNISOLONE. [Concomitant]
     Active Substance: PREDNISOLONE
  6. PREDNISOLONE. [Concomitant]
     Active Substance: PREDNISOLONE
     Dates: start: 198007
  7. INDOMETHACIN. [Concomitant]
     Active Substance: INDOMETHACIN
     Indication: RHEUMATOID ARTHRITIS
  8. D-PENICILLAMINE [Suspect]
     Active Substance: PENICILLAMINE
     Route: 065
     Dates: end: 197908
  9. PREDNISOLONE. [Concomitant]
     Active Substance: PREDNISOLONE
     Indication: RHEUMATOID ARTHRITIS
  10. D-PENICILLAMINE [Suspect]
     Active Substance: PENICILLAMINE
     Route: 065
     Dates: end: 198007
  11. PREDNISOLONE. [Concomitant]
     Active Substance: PREDNISOLONE
     Dates: start: 1980

REACTIONS (5)
  - Myasthenia gravis [Recovered/Resolved]
  - Polymyositis [Recovered/Resolved]
  - Proteinuria [Recovered/Resolved]
  - Skin lesion [Recovered/Resolved]
  - Systemic lupus erythematosus [Recovered/Resolved]

NARRATIVE: CASE EVENT DATE: 197711
